FAERS Safety Report 5839415-3 (Version None)
Quarter: 2008Q3

REPORT INFORMATION
  Report Type: 
  Country: None (occurrence: None)
  Receive Date: 20080806
  Receipt Date: 20080418
  Transmission Date: 20090109
  Serious: Yes (Hospitalization)
  Sender: FDA-Public Use
  Company Number: 2008SP007335

PATIENT
  Age: 60 Year
  Sex: Male

DRUGS (10)
  1. VIRAFERON [Suspect]
     Indication: HEPATITIS C
     Dates: start: 20071113, end: 20080328
  2. RIBAVIRIN [Suspect]
     Indication: HEPATITIS C
     Dates: start: 20071113, end: 20080328
  3. LAROXYL (CON.) [Concomitant]
  4. KEPPRA (CON.) [Concomitant]
  5. DEXERYL (CON.) [Concomitant]
  6. ATARAX (CON.) [Concomitant]
  7. NERISONE (CON.) [Concomitant]
  8. AERIUS (CON.) [Concomitant]
  9. TRIDESONIT (CON.) [Concomitant]
  10. LAMICTAL [Suspect]
     Indication: EPILEPSY
     Dosage: PO
     Route: 048
     Dates: start: 20080115, end: 20080331

REACTIONS (13)
  - ECZEMA [None]
  - ERYTHEMA [None]
  - GLOSSODYNIA [None]
  - HYPOTHYROIDISM [None]
  - MOUTH ULCERATION [None]
  - MUSCULAR WEAKNESS [None]
  - PARAESTHESIA [None]
  - PRURITUS [None]
  - RASH PAPULAR [None]
  - SEBORRHOEIC KERATOSIS [None]
  - SKIN PAPILLOMA [None]
  - SWELLING FACE [None]
  - TONGUE DISORDER [None]
